FAERS Safety Report 23032202 (Version 1)
Quarter: 2023Q4

REPORT INFORMATION
  Report Type: Spontaneous
  Country: US (occurrence: US)
  Receive Date: 20231005
  Receipt Date: 20231005
  Transmission Date: 20240110
  Serious: No
  Sender: FDA-Public Use
  Company Number: US-CADILA HEALTHCARE LIMITED-US-ZYDUS-095609

PATIENT

DRUGS (1)
  1. COLESTIPOL [Suspect]
     Active Substance: COLESTIPOL
     Indication: Irritable bowel syndrome
     Dosage: 6 TIMES A DAY
     Route: 048

REACTIONS (4)
  - Choking [Recovered/Resolved]
  - Dyspnoea [Recovered/Resolved]
  - Hypotension [Recovered/Resolved]
  - Panic attack [Recovered/Resolved]

NARRATIVE: CASE EVENT DATE: 20230624
